FAERS Safety Report 16019717 (Version 1)
Quarter: 2019Q1

REPORT INFORMATION
  Report Type: Spontaneous
  Country: GB (occurrence: GB)
  Receive Date: 20190228
  Receipt Date: 20190228
  Transmission Date: 20190418
  Serious: Yes (Life-Threatening, Hospitalization, Other)
  Sender: FDA-Public Use
  Company Number: GB-TEVA-2019-GB-1015991

PATIENT
  Age: 56 Year
  Sex: Female

DRUGS (23)
  1. FOLIC ACID. [Concomitant]
     Active Substance: FOLIC ACID
  2. LEVOFLOXACIN. [Suspect]
     Active Substance: LEVOFLOXACIN
     Dosage: 1000 MILLIGRAM DAILY;
     Dates: start: 20190116
  3. ONDANSETRON [Suspect]
     Active Substance: ONDANSETRON
     Dosage: THREE TIMES DAILY
     Dates: start: 20190120, end: 20190131
  4. IBUPROFEN. [Concomitant]
     Active Substance: IBUPROFEN
  5. NYSTATIN. [Concomitant]
     Active Substance: NYSTATIN
     Dosage: 4 ML DAILY; 100,000UNITS/ML
     Dates: start: 20190120, end: 20190127
  6. LINEZOLID. [Concomitant]
     Active Substance: LINEZOLID
     Dosage: 1200 MILLIGRAM DAILY;
     Dates: start: 20190125, end: 20190130
  7. CODEINE [Concomitant]
     Active Substance: CODEINE
  8. MORPHINE SULFATE. [Concomitant]
     Active Substance: MORPHINE SULFATE
     Dosage: 10MG/5ML
  9. FOSFOMYCIN [Concomitant]
     Active Substance: FOSFOMYCIN
     Dosage: 24 GRAM DAILY;
     Dates: start: 20190120
  10. CHLORPHENAMINE [Concomitant]
     Active Substance: CHLORPHENIRAMINE MALEATE
  11. CYCLIZINE [Concomitant]
     Active Substance: CYCLIZINE
  12. ADIZEM [Concomitant]
     Active Substance: DILTIAZEM HYDROCHLORIDE
  13. GABAPENTIN. [Concomitant]
     Active Substance: GABAPENTIN
  14. CASPOFUNGIN [Concomitant]
     Active Substance: CASPOFUNGIN
     Dosage: 70 MILLIGRAM DAILY; IN THE MORNING
     Dates: end: 20181102
  15. FLUCONAZOLE. [Suspect]
     Active Substance: FLUCONAZOLE
     Route: 065
  16. LEVOTHYROXINE SODIUM. [Concomitant]
     Active Substance: LEVOTHYROXINE SODIUM
  17. LEVOTHYROXINE SODIUM. [Concomitant]
     Active Substance: LEVOTHYROXINE SODIUM
  18. TINZAPARIN SODIUM [Concomitant]
     Active Substance: TINZAPARIN SODIUM
     Dosage: ,500UNITS/0.45ML SOLUTION FOR INJECTION PRE-FILLED
  19. OMEPRAZOLE. [Suspect]
     Active Substance: OMEPRAZOLE
     Dosage: 40 MILLIGRAM DAILY;
  20. METOCLOPRAMIDE. [Suspect]
     Active Substance: METOCLOPRAMIDE
     Dosage: 10MG/2ML
  21. METRONIDAZOLE. [Suspect]
     Active Substance: METRONIDAZOLE
     Dosage: 1500 MILLIGRAM DAILY; 500MG/100ML INFUSION 100ML BAGS
     Dates: start: 20190128, end: 20190130
  22. VANCOMYCIN [Concomitant]
     Active Substance: VANCOMYCIN
     Dosage: 3500 MILLIGRAM DAILY;
     Dates: start: 20190130
  23. PARACETAMOL [Concomitant]
     Active Substance: ACETAMINOPHEN

REACTIONS (1)
  - Electrocardiogram QT prolonged [Not Recovered/Not Resolved]
